FAERS Safety Report 16651377 (Version 2)
Quarter: 2019Q3

REPORT INFORMATION
  Report Type: Report from Study
  Country: ES (occurrence: ES)
  Receive Date: 20190731
  Receipt Date: 20190816
  Transmission Date: 20191004
  Serious: Yes (Death, Hospitalization, Other)
  Sender: FDA-Public Use
  Company Number: ES-KYOWAKIRIN-2017CKK000430AA

PATIENT

DRUGS (27)
  1. PRIMPERAN [Concomitant]
     Active Substance: METOCLOPRAMIDE HYDROCHLORIDE
     Indication: VOMITING
  2. AMIKACIN. [Concomitant]
     Active Substance: AMIKACIN
     Indication: BACTERAEMIA
     Dosage: 1400 MG, QD
     Dates: start: 20130911, end: 20130917
  3. MOGAMULIZUMAB [Suspect]
     Active Substance: MOGAMULIZUMAB
     Indication: PERIPHERAL T-CELL LYMPHOMA UNSPECIFIED
     Dosage: UNK
     Route: 042
     Dates: end: 20130723
  4. URBASON                            /00049601/ [Concomitant]
     Active Substance: METHYLPREDNISOLONE
     Indication: GRAFT VERSUS HOST DISEASE
     Dosage: VARIABLE DOSE
     Dates: start: 20130911, end: 20140117
  5. URBASON                            /00049601/ [Concomitant]
     Active Substance: METHYLPREDNISOLONE
     Indication: DIARRHOEA
     Dosage: 30 MG, QD
     Dates: start: 20140203, end: 20140218
  6. LEXXEMA [Concomitant]
     Indication: GRAFT VERSUS HOST DISEASE
     Dosage: 1 APL, Q12H
     Dates: start: 20130925, end: 20131211
  7. PRIMPERAN [Concomitant]
     Active Substance: METOCLOPRAMIDE HYDROCHLORIDE
     Indication: NAUSEA
     Dosage: 1 AMPOULE, QD
     Dates: start: 20130901, end: 20130902
  8. FLUTICASONE. [Concomitant]
     Active Substance: FLUTICASONE
     Indication: GRAFT VERSUS HOST DISEASE
     Dosage: 1 APL, Q12H
     Dates: start: 20131219
  9. PREDNISONE. [Concomitant]
     Active Substance: PREDNISONE
     Indication: GRAFT VERSUS HOST DISEASE
     Dosage: 25 MG, QD
     Dates: start: 20140218
  10. ZOFRAN [Concomitant]
     Active Substance: ONDANSETRON HYDROCHLORIDE
     Indication: NAUSEA
     Dosage: 8 MG, TID
     Dates: start: 20130901, end: 20130910
  11. ZOFRAN [Concomitant]
     Active Substance: ONDANSETRON HYDROCHLORIDE
     Indication: VOMITING
  12. MEROPENEM. [Concomitant]
     Active Substance: MEROPENEM
     Indication: PYREXIA
     Dosage: 1 G, Q8H
     Dates: start: 20130911, end: 20130913
  13. MEROPENEM. [Concomitant]
     Active Substance: MEROPENEM
     Indication: BACTERAEMIA
     Dosage: 1 G, Q8H
     Dates: start: 20131218, end: 20131223
  14. TEICOPLANINE [Concomitant]
     Active Substance: TEICOPLANIN
     Indication: PYREXIA
     Dosage: 400 MG, QD
     Dates: start: 20140202, end: 20140218
  15. CODEISAN [Concomitant]
     Active Substance: CODEINE PHOSPHATE
     Indication: MUCOSAL INFLAMMATION
     Dosage: 2 TABS
     Dates: start: 20130909, end: 20130910
  16. BUDESONIDE. [Concomitant]
     Active Substance: BUDESONIDE
     Dosage: 3 MG, Q8H
     Dates: start: 20140124, end: 20140130
  17. MEROPENEM. [Concomitant]
     Active Substance: MEROPENEM
     Dosage: 1 G, Q8H
     Dates: start: 20140201, end: 20140218
  18. TEICOPLANINE [Concomitant]
     Active Substance: TEICOPLANIN
     Indication: BACTERAEMIA
     Dosage: 400 MG, QD
     Dates: start: 20130911, end: 20130920
  19. BECLOMETASONE [Concomitant]
     Active Substance: BECLOMETHASONE DIPROPIONATE
     Indication: GRAFT VERSUS HOST DISEASE
     Dosage: 4 ML, Q6H
     Dates: start: 20130911, end: 20131022
  20. BUDESONIDE. [Concomitant]
     Active Substance: BUDESONIDE
     Dosage: 3 MG, Q8H
     Dates: start: 20131211, end: 20140117
  21. IMIPENEM [Concomitant]
     Active Substance: IMIPENEM
     Indication: BACTERAEMIA
     Dosage: 500 MG, Q12H
     Dates: start: 20130913, end: 20130925
  22. METRONIDAZOL                       /00012501/ [Concomitant]
     Active Substance: METRONIDAZOLE
     Indication: PYREXIA
     Dosage: 500 MG, Q8H
     Dates: start: 20140201, end: 20140211
  23. BECLOMETASONE [Concomitant]
     Active Substance: BECLOMETHASONE DIPROPIONATE
     Dosage: 4 ML, Q6H
     Dates: start: 20131211, end: 20140130
  24. BUDESONIDE. [Concomitant]
     Active Substance: BUDESONIDE
     Indication: GRAFT VERSUS HOST DISEASE
     Dosage: 3 MG, Q8H
     Dates: start: 20130911, end: 20131115
  25. URBASON                            /00049601/ [Concomitant]
     Active Substance: METHYLPREDNISOLONE
     Dosage: 16 MG, QD
     Dates: start: 20140224
  26. PARACETAMOL [Concomitant]
     Active Substance: ACETAMINOPHEN
     Indication: PYREXIA
     Dosage: 1 G, BID
     Dates: start: 20131218, end: 20131218
  27. CIPROFLOXACIN. [Concomitant]
     Active Substance: CIPROFLOXACIN
     Indication: EAR INFECTION
     Dosage: 6 DROPS, Q8H
     Dates: start: 20140216, end: 20140225

REACTIONS (15)
  - Bacteraemia [Recovered/Resolved]
  - Ear infection [Recovered/Resolved]
  - Pyrexia [Recovered/Resolved]
  - Vomiting [Recovered/Resolved]
  - Multiple organ dysfunction syndrome [Fatal]
  - Pyrexia [Recovered/Resolved]
  - Mucosal inflammation [Recovered/Resolved]
  - Diarrhoea [Recovered/Resolved]
  - Infection [Fatal]
  - Graft versus host disease in skin [Unknown]
  - Stem cell transplant [Unknown]
  - Diarrhoea [Recovered/Resolved]
  - Nausea [Recovered/Resolved]
  - Acute graft versus host disease [Fatal]
  - Graft versus host disease in gastrointestinal tract [Unknown]

NARRATIVE: CASE EVENT DATE: 20130901
